FAERS Safety Report 9002091 (Version 1)
Quarter: 2013Q1

REPORT INFORMATION
  Report Type: Spontaneous
  Country: US (occurrence: None)
  Receive Date: 20130102
  Receipt Date: 20130102
  Transmission Date: 20140127
  Serious: Yes (Life-Threatening)
  Sender: FDA-Public Use
  Company Number: None

PATIENT
  Age: 75 Year
  Sex: Male
  Weight: 86 kg

DRUGS (1)
  1. ACETAMINOPHEN/OXYCODONE [Suspect]
     Indication: PAIN
     Dosage: 2 TAB
     Route: 048
     Dates: start: 20121119, end: 20121121

REACTIONS (4)
  - Hypotension [None]
  - Sedation [None]
  - Respiratory depression [None]
  - Cardio-respiratory arrest [None]
